FAERS Safety Report 12844207 (Version 1)
Quarter: 2016Q4

REPORT INFORMATION
  Report Type: Spontaneous
  Country: US (occurrence: US)
  Receive Date: 20161013
  Receipt Date: 20161013
  Transmission Date: 20170207
  Serious: No
  Sender: FDA-Public Use
  Company Number: US-ROCHE-1406781

PATIENT
  Age: 72 Year
  Sex: Male

DRUGS (1)
  1. VEMURAFENIB [Suspect]
     Active Substance: VEMURAFENIB
     Indication: LUNG ADENOCARCINOMA
     Route: 065

REACTIONS (1)
  - Eccrine squamous syringometaplasia [Recovered/Resolved]
